FAERS Safety Report 13016932 (Version 1)
Quarter: 2016Q4

REPORT INFORMATION
  Report Type: Report from Study
  Country: AR (occurrence: AR)
  Receive Date: 20161212
  Receipt Date: 20161212
  Transmission Date: 20170207
  Serious: Yes (Other)
  Sender: FDA-Public Use
  Company Number: PHHY2016AR169531

PATIENT
  Sex: Female

DRUGS (1)
  1. GILENYA [Suspect]
     Active Substance: FINGOLIMOD HYDROCHLORIDE
     Indication: MULTIPLE SCLEROSIS
     Dosage: 0.5 MG, DAILY
     Route: 065
     Dates: start: 201609

REACTIONS (4)
  - Abdominal distension [Unknown]
  - Pain [Not Recovered/Not Resolved]
  - Liver injury [Unknown]
  - Fluid retention [Unknown]
